FAERS Safety Report 4586531-2 (Version None)
Quarter: 2005Q1

REPORT INFORMATION
  Report Type: 
  Country: None (occurrence: None)
  Receive Date: 20050218
  Receipt Date: 20040122
  Transmission Date: 20050727
  Serious: No
  Sender: FDA-Public Use
  Company Number: US-BRISTOL-MYERS SQUIBB COMPANY-12485793

PATIENT
  Age: 66 Year
  Sex: Male
  Weight: 78 kg

DRUGS (16)
  1. TAXOL [Suspect]
     Indication: ANGIOSARCOMA
     Route: 042
     Dates: start: 20040106, end: 20040106
  2. KYTRIL [Concomitant]
  3. DECADRON [Concomitant]
  4. ZANTAC [Concomitant]
  5. BENADRYL [Concomitant]
  6. PHENERGAN [Concomitant]
  7. SENNA [Concomitant]
  8. RESTORIL [Concomitant]
  9. COLACE [Concomitant]
  10. MILK OF MAGNESIA [Concomitant]
  11. DARVOCET [Concomitant]
  12. PAXIL [Concomitant]
  13. MEGACE [Concomitant]
  14. FLOMAX [Concomitant]
  15. LOTENSIN [Concomitant]
  16. ASPIRIN [Concomitant]

REACTIONS (1)
  - EXTRAVASATION [None]
